FAERS Safety Report 4773958-9 (Version None)
Quarter: 2005Q3

REPORT INFORMATION
  Report Type: 
  Country: None (occurrence: None)
  Receive Date: 20050920
  Receipt Date: 20041221
  Transmission Date: 20060218
  Serious: Yes (Hospitalization, Other)
  Sender: FDA-Public Use
  Company Number: 200419753US

PATIENT
  Sex: Female
  Weight: 75 kg

DRUGS (59)
  1. DDAVP [Suspect]
     Indication: ENURESIS
     Route: 048
     Dates: start: 20041122, end: 20041128
  2. LIPITOR [Concomitant]
     Indication: BLOOD CHOLESTEROL
     Route: 048
     Dates: start: 20021001
  3. TOPROL-XL [Concomitant]
     Indication: BLOOD PRESSURE
     Route: 048
     Dates: start: 20031101
  4. PERCOCET [Concomitant]
     Indication: BACK PAIN
     Route: 048
     Dates: start: 20030801
  5. ALLOPURINOL [Concomitant]
     Indication: BLOOD URIC ACID
     Route: 048
     Dates: start: 20031101, end: 20041221
  6. SYNTHROID [Concomitant]
     Indication: HYPOTHYROIDISM
     Route: 048
     Dates: start: 19900101
  7. MICRO-K [Concomitant]
     Indication: BLOOD POTASSIUM DECREASED
     Route: 048
     Dates: start: 20000101, end: 20041209
  8. HYDROCHLOROTHIAZIDE [Concomitant]
     Indication: BLOOD PRESSURE
     Route: 048
     Dates: start: 20020101, end: 20041209
  9. DETROL [Concomitant]
     Indication: MICTURITION URGENCY
     Dosage: DOSE: 2-4
     Route: 048
     Dates: start: 20020101
  10. ACIPHEX [Concomitant]
     Indication: VESICOURETERIC REFLUX
     Route: 048
     Dates: start: 20020101
  11. UNIVASC [Concomitant]
     Indication: BLOOD PRESSURE
     Route: 048
  12. MOBIC [Concomitant]
     Indication: ARTHRITIS
     Route: 048
     Dates: start: 20041201
  13. MOBIC [Concomitant]
     Indication: BACK PAIN
     Route: 048
     Dates: start: 20041201
  14. OMEGA 3 [Concomitant]
  15. ASCORBIC ACID [Concomitant]
  16. VITAMIN E [Concomitant]
  17. VITAMIN B COMPLEX CAP [Concomitant]
  18. CALCIUM MAGNESIUM ZINC [Concomitant]
     Dosage: DOSE: 1000/400/15
  19. ASPIRIN [Concomitant]
  20. IRON SUPPLEMENT [Concomitant]
  21. FLUTICASONE [Concomitant]
     Dosage: DOSE: 2 SQUIRTS
  22. DOCUSATE SODIUM [Concomitant]
  23. ZOLPIDEM [Concomitant]
     Dosage: DOSE: 5-10
  24. PANTOPRAZOLE [Concomitant]
  25. FOLIC ACID [Concomitant]
  26. ULTRACET [Concomitant]
     Dosage: DOSE: 37.5/325 (1-2 QID)
  27. COLCHICINE [Concomitant]
  28. ULTRAM [Concomitant]
  29. VIOXX [Concomitant]
  30. GUAIFENESIN LA [Concomitant]
  31. RELAFEN [Concomitant]
  32. OXAPROZIN [Concomitant]
  33. AMPHETAMINE [Concomitant]
  34. COVERA-HS [Concomitant]
  35. ACETAMINOPHEN AND HYDROCODONE BITARTRATE [Concomitant]
     Dosage: DOSE: 5/500 (1-2 QID)
  36. ACETAMINOPHEN W/ CODEINE [Concomitant]
     Dosage: DOSE: 30-60
  37. CIPRO [Concomitant]
  38. METHYLPREDNISOLONE [Concomitant]
  39. IBUPROFEN [Concomitant]
  40. MISOPROSTOL [Concomitant]
  41. CARISOPRODOL [Concomitant]
  42. KETOROLAC TROMETHAMINE [Concomitant]
  43. OXYCONTIN [Concomitant]
  44. MORPHINE [Concomitant]
  45. CEPHALEXIN [Concomitant]
  46. NEURONTIN [Concomitant]
  47. AMOXICILLIN [Concomitant]
  48. PROMETHAZINE [Concomitant]
  49. INDOMETHACIN [Concomitant]
  50. NITROFURANTOIN [Concomitant]
  51. PROBENECID W/ COLCHICINE [Concomitant]
  52. DURAGESIC-100 [Concomitant]
  53. SULINDAC [Concomitant]
  54. CATAPRES [Concomitant]
     Dosage: DOSE: NOT PROVIDED
  55. CLONIDINE [Concomitant]
     Dosage: DOSE: 0.1-0.2
  56. PROBENECID [Concomitant]
  57. TRAMADOL [Concomitant]
  58. ANTIDEPRESSANTS [Concomitant]
  59. VALERIAN [Concomitant]
     Indication: SOMNOLENCE

REACTIONS (16)
  - AGGRESSION [None]
  - BLOOD CHLORIDE DECREASED [None]
  - CONSTIPATION [None]
  - DEAFNESS [None]
  - DIPLOPIA [None]
  - DIZZINESS [None]
  - DYSPEPSIA [None]
  - FATIGUE [None]
  - FLATULENCE [None]
  - HYPONATRAEMIA [None]
  - INFLUENZA LIKE ILLNESS [None]
  - MENTAL IMPAIRMENT [None]
  - MIDDLE EAR EFFUSION [None]
  - NAUSEA [None]
  - VISION BLURRED [None]
  - VISUAL DISTURBANCE [None]
